FAERS Safety Report 23278474 (Version 1)
Quarter: 2023Q4

REPORT INFORMATION
  Report Type: Spontaneous
  Country: US (occurrence: US)
  Receive Date: 20231208
  Receipt Date: 20231208
  Transmission Date: 20240110
  Serious: Yes (Hospitalization, Other)
  Sender: FDA-Public Use
  Company Number: US-BRISTOL-MYERS SQUIBB COMPANY-2023-173145

PATIENT
  Age: 73 Year
  Sex: Male

DRUGS (1)
  1. LENALIDOMIDE [Suspect]
     Active Substance: LENALIDOMIDE
     Indication: Plasma cell myeloma
     Dosage: FREQUENCY: 21
     Dates: start: 20230525

REACTIONS (5)
  - Nephrolithiasis [Unknown]
  - Urinary tract infection [Unknown]
  - Prostatic disorder [Unknown]
  - Sepsis [Unknown]
  - Urethral obstruction [Unknown]

NARRATIVE: CASE EVENT DATE: 20230101
